FAERS Safety Report 14409236 (Version 1)
Quarter: 2018Q1

REPORT INFORMATION
  Report Type: Spontaneous
  Country: RU (occurrence: RU)
  Receive Date: 20180119
  Receipt Date: 20180119
  Transmission Date: 20180509
  Serious: Yes (Hospitalization)
  Sender: FDA-Public Use
  Company Number: RU-ASTRAZENECA-2018SE06324

PATIENT
  Age: 54 Year
  Sex: Male
  Weight: 85 kg

DRUGS (9)
  1. PREDUCTAL A [Concomitant]
  2. METFORMIN [Concomitant]
     Active Substance: METFORMIN HYDROCHLORIDE
  3. TULIP (ATORVASTATIN CALCIUM) [Concomitant]
     Active Substance: ATORVASTATIN CALCIUM
  4. PRESTARIUM A [Concomitant]
     Active Substance: PERINDOPRIL ARGININE
  5. OMEZ [Concomitant]
     Active Substance: OMEPRAZOLE
  6. DE-NOL [Concomitant]
     Dates: start: 20171223
  7. BRILINTA [Suspect]
     Active Substance: TICAGRELOR
     Indication: MYOCARDIAL INFARCTION
     Route: 048
     Dates: start: 20170424
  8. THROMBO ASS [Concomitant]
     Active Substance: ASPIRIN
  9. VEROSPIRON [Concomitant]
     Active Substance: SPIRONOLACTONE

REACTIONS (1)
  - Duodenal ulcer [Recovered/Resolved]
